FAERS Safety Report 16809124 (Version 1)
Quarter: 2019Q3

REPORT INFORMATION
  Report Type: Report from Study
  Country: JP (occurrence: JP)
  Receive Date: 20190916
  Receipt Date: 20190916
  Transmission Date: 20191005
  Serious: Yes (Other)
  Sender: FDA-Public Use
  Company Number: JP-ROCHE-2411865

PATIENT
  Sex: Male

DRUGS (1)
  1. BEVACIZUMAB. [Suspect]
     Active Substance: BEVACIZUMAB
     Indication: RETINOPATHY OF PREMATURITY
     Dosage: 0.625 MG/0.025 ML
     Route: 050

REACTIONS (3)
  - Necrotising colitis [Unknown]
  - Lung disorder [Unknown]
  - Intraventricular haemorrhage [Unknown]
